FAERS Safety Report 23215316 (Version 1)
Quarter: 2023Q4

REPORT INFORMATION
  Report Type: Spontaneous
  Country: GB (occurrence: GB)
  Receive Date: 20231122
  Receipt Date: 20231122
  Transmission Date: 20240110
  Serious: Yes (Other)
  Sender: FDA-Public Use
  Company Number: None

PATIENT
  Age: 77 Year
  Sex: Male
  Weight: 83 kg

DRUGS (15)
  1. TRIMETHOPRIM [Suspect]
     Active Substance: TRIMETHOPRIM
     Indication: Urinary tract infection
     Dosage: 400 MILLIGRAM DAILY; FOR 7 DAYS, UNIT DOSE: 200MG, FREQUENCY: TWICE DAILY
     Route: 065
     Dates: start: 20231012, end: 20231019
  2. CLOBETASOL PROPIONATE [Concomitant]
     Active Substance: CLOBETASOL PROPIONATE
     Indication: Product used for unknown indication
     Dosage: APPLY 1-2 TIMES, FREQUENCY TIME: 1 DAYS
     Dates: start: 20181220
  3. AMOXICILLIN\CLAVULANATE POTASSIUM [Concomitant]
     Active Substance: AMOXICILLIN\CLAVULANATE POTASSIUM
     Indication: Product used for unknown indication
     Dosage: 3 DOSAGE FORMS DAILY; UNIT DOSE: 1DF, FREQUENCY: THRICE DAILY
     Dates: start: 20231108
  4. DAPAGLIFLOZIN [Concomitant]
     Active Substance: DAPAGLIFLOZIN
     Indication: Product used for unknown indication
     Dosage: 1 DOSAGE FORMS DAILY; UNIT DOSE: 1DF, FREQUENCY: ONCE DAILY
     Dates: start: 20221214
  5. FINASTERIDE [Concomitant]
     Active Substance: FINASTERIDE
     Indication: Product used for unknown indication
     Dosage: 1 DOSAGE FORMS DAILY; UNIT DOSE: 1DF, FREQUENCY: ONCE DAILY
     Dates: start: 20181220
  6. GABAPENTIN [Concomitant]
     Active Substance: GABAPENTIN
     Indication: Product used for unknown indication
     Dosage: 1 DOSAGE FORMS DAILY; AT NIGHT. IF NO BETTER CAN INCREASE TO 2, UNIT DOSE: 1DF
     Dates: start: 20220124
  7. LINAGLIPTIN [Concomitant]
     Active Substance: LINAGLIPTIN
     Indication: Product used for unknown indication
     Dosage: 1 DOSAGE FORMS DAILY; UNIT DOSE: 1DF, FREQUENCY: ONCE DAILY
     Dates: start: 20190320
  8. METFORMIN [Concomitant]
     Active Substance: METFORMIN HYDROCHLORIDE
     Indication: Product used for unknown indication
     Dosage: 4 DOSAGE FORMS DAILY; UNIT DOSE: 2 DF, FREQUENCY: TWICE DAILY
     Dates: start: 20170512
  9. MORPHINE SULFATE [Concomitant]
     Active Substance: MORPHINE SULFATE
     Indication: Product used for unknown indication
     Dosage: 2.5 TO 5 ML EVERY 4-6 HOURS AS NEEDED
     Dates: start: 20210518
  10. NITROFURANTOIN [Concomitant]
     Active Substance: NITROFURANTOIN
     Indication: Product used for unknown indication
     Dosage: 2 DOSAGE FORMS DAILY; FOR 7 DAYS, TO TRE, UNIT DOSE: 1DF, FREQUENCY: TWICE DAILY
     Dates: start: 20230919, end: 20230926
  11. RAMIPRIL [Concomitant]
     Active Substance: RAMIPRIL
     Indication: Product used for unknown indication
     Dosage: 1 DOSAGE FORMS DAILY; UNIT DOSE: 1DF, FREQUENCY: ONCE DAILY
     Dates: start: 20190716
  12. SIMVASTATIN [Concomitant]
     Active Substance: SIMVASTATIN
     Indication: Product used for unknown indication
     Dosage: 1 DOSAGE FORMS DAILY; NIGHT, UNIT DOSE: 1DF
     Dates: start: 20170512
  13. SOLIFENACIN [Concomitant]
     Active Substance: SOLIFENACIN
     Indication: Product used for unknown indication
     Dosage: 1 DOSAGE FORMS DAILY; UNIT DOSE: 1DF, FREQUENCY: ONCE DAILY
     Dates: start: 20220613
  14. TAMSULOSIN HYDROCHLORIDE [Concomitant]
     Active Substance: TAMSULOSIN HYDROCHLORIDE
     Indication: Product used for unknown indication
     Dosage: 1 DOSAGE FORMS DAILY; UNIT DOSE: 1DF, FREQUENCY: ONCE DAILY
     Dates: start: 20220824
  15. ACETAMINOPHEN\CODEINE PHOSPHATE [Concomitant]
     Active Substance: ACETAMINOPHEN\CODEINE PHOSPHATE
     Indication: Product used for unknown indication
     Dosage: TAKE 1 OR 2 4 TIMES/DAY WHEN REQUIRED
     Dates: start: 20170512

REACTIONS (1)
  - Palpitations [Recovered/Resolved]
